FAERS Safety Report 11314245 (Version 1)
Quarter: 2015Q3

REPORT INFORMATION
  Report Type: Spontaneous
  Country: CN (occurrence: CN)
  Receive Date: 20150727
  Receipt Date: 20150727
  Transmission Date: 20151125
  Serious: Yes (Other)
  Sender: FDA-Public Use
  Company Number: CN-GLAXOSMITHKLINE-CN2015GSK105338

PATIENT
  Age: 32 Year
  Sex: Male
  Weight: 76.5 kg

DRUGS (2)
  1. HEPSERA [Suspect]
     Active Substance: ADEFOVIR DIPIVOXIL
     Indication: HEPATITIS B
     Dosage: 1 UNK, QD
     Route: 048
     Dates: start: 20080310, end: 20141127
  2. HEPTODIN [Suspect]
     Active Substance: LAMIVUDINE
     Indication: HEPATITIS B
     Dosage: 1 UNK, QD
     Route: 048
     Dates: start: 2005

REACTIONS (1)
  - Fanconi syndrome acquired [Unknown]

NARRATIVE: CASE EVENT DATE: 20141127
